FAERS Safety Report 4603493-X (Version None)
Quarter: 2005Q2

REPORT INFORMATION
  Report Type: 
  Country: None (occurrence: None)
  Receive Date: 20050223
  Receipt Date: 20041209
  Transmission Date: 20051028
  Serious: No
  Sender: FDA-Public Use
  Company Number: 211033

PATIENT
  Sex: Female

DRUGS (1)
  1. RAPTIVA [Suspect]
     Dosage: 0.9 ML, 1/WEEK, SUBCUTANEOUS
     Route: 058

REACTIONS (1)
  - NASOPHARYNGITIS [None]
